FAERS Safety Report 20835338 (Version 1)
Quarter: 2022Q2

REPORT INFORMATION
  Report Type: Spontaneous
  Country: GH (occurrence: GH)
  Receive Date: 20220516
  Receipt Date: 20220516
  Transmission Date: 20220720
  Serious: Yes (Hospitalization)
  Sender: FDA-Public Use
  Company Number: GH-BAYER-2022A010815

PATIENT
  Age: 32 Year
  Sex: Female

DRUGS (2)
  1. LEVONORGESTREL [Suspect]
     Active Substance: LEVONORGESTREL
     Indication: Contraception
     Dosage: UNK
     Route: 059
     Dates: start: 20180712, end: 20210929
  2. CARBAMAZEPINE [Concomitant]
     Active Substance: CARBAMAZEPINE
     Dates: end: 201806

REACTIONS (2)
  - Pregnancy with implant contraceptive [Unknown]
  - Therapeutic product ineffective [Unknown]

NARRATIVE: CASE EVENT DATE: 20210929
